FAERS Safety Report 8787025 (Version 1)
Quarter: 2012Q4

REPORT INFORMATION
  Report Type: 
  Country: US (occurrence: US)
  Receive Date: 20120914
  Receipt Date: 20120914
  Transmission Date: 20130627
  Serious: Yes (Other)
  Sender: FDA-Public Use
  Company Number: US-ASTELLAS-2012US007637

PATIENT
  Age: 31 Year
  Sex: Male

DRUGS (2)
  1. PROGRAF [Suspect]
     Indication: RENAL TRANSPLANT
     Dosage: 3 mg, bid
     Route: 048
  2. PROGRAF [Suspect]
     Indication: PANCREAS TRANSPLANT

REACTIONS (2)
  - Off label use [Unknown]
  - Pancreas transplant [Unknown]
